FAERS Safety Report 6274680-2 (Version None)
Quarter: 2009Q3

REPORT INFORMATION
  Report Type: 
  Country: None (occurrence: None)
  Receive Date: 20090721
  Receipt Date: 20070926
  Transmission Date: 20100115
  Serious: Yes (Other)
  Sender: FDA-Public Use
  Company Number: US-ASTRAZENECA-2006UW24197

PATIENT
  Age: 18677 Day
  Sex: Male
  Weight: 71.7 kg

DRUGS (10)
  1. SEROQUEL [Suspect]
     Dosage: 25MG - 800MG
     Route: 048
     Dates: start: 20030312
  2. SEROQUEL [Suspect]
     Route: 048
  3. WELLBUTRIN [Concomitant]
     Dates: start: 19971120
  4. MONOPRIL [Concomitant]
     Dosage: 20-40 MG
     Dates: start: 20000410
  5. GEMFIBROZIL [Concomitant]
     Dosage: 600-1200MG
     Dates: start: 20030721
  6. ATIVAN [Concomitant]
     Indication: ANXIETY
     Dosage: 1MG BID PLUS 2MG HS
     Dates: start: 19990625
  7. RANITIDINE [Concomitant]
     Dosage: 150-300 MG
     Dates: start: 19980921
  8. HUMULIN R [Concomitant]
     Dosage: 25 UNITS IN MORNING, 15-22 UNITS IN EVENING
  9. DIAZEPAM [Concomitant]
     Dosage: 5-20MG
     Dates: start: 20050817
  10. NEURONTIN [Concomitant]
     Indication: AFFECTIVE DISORDER
     Dates: start: 20000207

REACTIONS (5)
  - ALCOHOLIC PANCREATITIS [None]
  - BLOOD GLUCOSE INCREASED [None]
  - DIABETES MELLITUS [None]
  - PANCREATITIS [None]
  - TYPE 2 DIABETES MELLITUS [None]
